FAERS Safety Report 9933611 (Version 2)
Quarter: 2014Q1

REPORT INFORMATION
  Report Type: Spontaneous
  Country: US (occurrence: US)
  Receive Date: 20140228
  Receipt Date: 20140228
  Transmission Date: 20141002
  Serious: No
  Sender: FDA-Public Use
  Company Number: US-ABBVIE-13P-163-1151093-00

PATIENT
  Sex: Male

DRUGS (8)
  1. ANDROGEL [Suspect]
     Indication: BLOOD TESTOSTERONE DECREASED
     Dates: start: 2013
  2. ANDROGEL [Suspect]
     Indication: HOT FLUSH
  3. INSULIN [Concomitant]
     Indication: DIABETES MELLITUS
  4. PERCOCET [Concomitant]
     Indication: PAIN
  5. ENALAPRIL [Concomitant]
     Indication: HYPERTENSION
  6. FENTANYL [Concomitant]
     Indication: PAIN
  7. GABAPENTIN [Concomitant]
     Indication: PAIN
  8. SIMVASTATIN [Concomitant]
     Indication: BLOOD CHOLESTEROL INCREASED

REACTIONS (4)
  - Hyperhidrosis [Not Recovered/Not Resolved]
  - Hot flush [Not Recovered/Not Resolved]
  - Heart rate increased [Recovered/Resolved]
  - Blood glucose increased [Recovered/Resolved]
